FAERS Safety Report 8240412 (Version 3)
Quarter: 2014Q3

REPORT INFORMATION
  Report Type: Report from Study
  Country: US (occurrence: US)
  Receive Date: 20111111
  Receipt Date: 20140701
  Transmission Date: 20150326
  Serious: Yes (Other)
  Sender: FDA-Public Use
  Company Number: US-BIOGENIDEC-2011BI042168

PATIENT
  Age: 24 Year
  Sex: Female

DRUGS (3)
  1. CLARITIN [Concomitant]
     Active Substance: LORATADINE
     Indication: PREMEDICATION
  2. TYSABRI [Suspect]
     Active Substance: NATALIZUMAB
     Indication: MULTIPLE SCLEROSIS
     Route: 042
     Dates: start: 20090717, end: 20111031
  3. TYLENOL [Concomitant]
     Active Substance: ACETAMINOPHEN
     Indication: PREMEDICATION

REACTIONS (24)
  - Anaphylactic shock [Recovered/Resolved]
  - Visual impairment [Not Recovered/Not Resolved]
  - Feeling hot [Unknown]
  - Migraine [Unknown]
  - Rash generalised [Not Recovered/Not Resolved]
  - Hypotension [Unknown]
  - Visual acuity reduced [Unknown]
  - Erythema [Not Recovered/Not Resolved]
  - Flushing [Unknown]
  - Dry skin [Unknown]
  - Toxicity to various agents [Not Recovered/Not Resolved]
  - Pyrexia [Unknown]
  - Hypertension [Not Recovered/Not Resolved]
  - Headache [Not Recovered/Not Resolved]
  - Pruritus [Not Recovered/Not Resolved]
  - Extraocular muscle paresis [Not Recovered/Not Resolved]
  - Skin burning sensation [Unknown]
  - Fatigue [Not Recovered/Not Resolved]
  - Adverse drug reaction [Unknown]
  - Feeling cold [Unknown]
  - Urticaria [Not Recovered/Not Resolved]
  - Skin atrophy [Unknown]
  - Rash erythematous [Unknown]
  - Pain of skin [Not Recovered/Not Resolved]

NARRATIVE: CASE EVENT DATE: 201105
